FAERS Safety Report 15434031 (Version 1)
Quarter: 2018Q3

REPORT INFORMATION
  Report Type: Spontaneous
  Country: US (occurrence: US)
  Receive Date: 20180927
  Receipt Date: 20180927
  Transmission Date: 20181010
  Serious: No
  Sender: FDA-Public Use
  Company Number: US-SA-2018SA266775

PATIENT
  Age: 66 Year
  Sex: Female

DRUGS (1)
  1. LANTUS [Suspect]
     Active Substance: INSULIN GLARGINE
     Dosage: 32 IU, QD
     Dates: start: 20170301

REACTIONS (2)
  - Device use issue [Unknown]
  - Visual impairment [Unknown]

NARRATIVE: CASE EVENT DATE: 20180921
